FAERS Safety Report 14145863 (Version 1)
Quarter: 2017Q4

REPORT INFORMATION
  Report Type: Other
  Country: FR (occurrence: FR)
  Receive Date: 20171031
  Receipt Date: 20171031
  Transmission Date: 20180321
  Serious: Yes (Death)
  Sender: FDA-Public Use
  Company Number: FR-VELOXIS PHARMACEUTICALS-2032856

PATIENT
  Age: 10 Year
  Sex: Female
  Weight: 20 kg

DRUGS (5)
  1. ENVARSUS XR [Suspect]
     Active Substance: TACROLIMUS
     Indication: LUNG TRANSPLANT
  2. ITRACONAZOLE. [Suspect]
     Active Substance: ITRACONAZOLE
  3. CYCLOSPORINE. [Suspect]
     Active Substance: CYCLOSPORINE
  4. MYCOPHENOLATE MOFETIL. [Suspect]
     Active Substance: MYCOPHENOLATE MOFETIL
  5. VORICONAZOLE. [Suspect]
     Active Substance: VORICONAZOLE

REACTIONS (2)
  - Transplant failure [Fatal]
  - Intentional product use issue [Unknown]
